FAERS Safety Report 16428063 (Version 1)
Quarter: 2019Q2

REPORT INFORMATION
  Report Type: Spontaneous
  Country: US (occurrence: US)
  Receive Date: 20190613
  Receipt Date: 20190613
  Transmission Date: 20190711
  Serious: No
  Sender: FDA-Public Use
  Company Number: US-PFIZER INC-2019250015

PATIENT
  Age: 80 Year
  Sex: Male

DRUGS (2)
  1. TAFAMIDIS MEGLUMINE [Suspect]
     Active Substance: TAFAMIDIS MEGLUMINE
     Indication: FAMILIAL AMYLOIDOSIS
     Dosage: 80 MG, DAILY
  2. TORSEMIDE. [Suspect]
     Active Substance: TORSEMIDE
     Dosage: 100/40MG DAILY

REACTIONS (4)
  - Fatigue [Unknown]
  - Irritability [Unknown]
  - Productive cough [Unknown]
  - Drug hypersensitivity [Unknown]
